FAERS Safety Report 25073309 (Version 1)
Quarter: 2025Q1

REPORT INFORMATION
  Report Type: Spontaneous
  Country: IN (occurrence: IN)
  Receive Date: 20250313
  Receipt Date: 20250313
  Transmission Date: 20250409
  Serious: Yes (Other)
  Sender: WOCKHARDT BIO AG
  Company Number: IN-WOCKHARDT BIO AG-2025WBA000018

PATIENT
  Age: 68 Year
  Sex: Male

DRUGS (1)
  1. PANTOPRAZOLE SODIUM [Suspect]
     Active Substance: PANTOPRAZOLE SODIUM
     Indication: Product used for unknown indication
     Route: 065

REACTIONS (3)
  - Hypocalcaemia [Recovering/Resolving]
  - Parkinsonism [Recovering/Resolving]
  - Hypomagnesaemia [Recovering/Resolving]
